FAERS Safety Report 24954058 (Version 1)
Quarter: 2025Q1

REPORT INFORMATION
  Report Type: Spontaneous
  Country: IN (occurrence: IN)
  Receive Date: 20250211
  Receipt Date: 20250211
  Transmission Date: 20250408
  Serious: Yes (Other)
  Sender: RANBAXY
  Company Number: IN-SUN PHARMACEUTICAL INDUSTRIES LTD-2025R1-493232

PATIENT
  Age: 35 Year
  Sex: Female

DRUGS (6)
  1. ASPIRIN [Suspect]
     Active Substance: ASPIRIN
     Indication: Product used for unknown indication
     Route: 065
  2. OXYTOCIN [Suspect]
     Active Substance: OXYTOCIN
     Indication: Induced labour
     Route: 030
  3. CALCIUM GLUCONATE [Suspect]
     Active Substance: CALCIUM GLUCONATE
     Route: 065
  4. CALCIUM GLUCONATE [Suspect]
     Active Substance: CALCIUM GLUCONATE
     Indication: Product used for unknown indication
  5. CALCIUM GLUCONATE [Suspect]
     Active Substance: CALCIUM GLUCONATE
  6. FERROUS SULFATE [Suspect]
     Active Substance: FERROUS SULFATE
     Indication: Product used for unknown indication
     Route: 065

REACTIONS (3)
  - Postpartum haemorrhage [Unknown]
  - Exposure during pregnancy [Unknown]
  - Premature delivery [Unknown]
